FAERS Safety Report 8173835-X (Version None)
Quarter: 2012Q1

REPORT INFORMATION
  Report Type: 
  Country: None (occurrence: None)
  Receive Date: 20120229
  Receipt Date: 20120221
  Transmission Date: 20120608
  Serious: Yes (Hospitalization)
  Sender: FDA-Public Use
  Company Number: ES-ELI_LILLY_AND_COMPANY-ES201202006735

PATIENT
  Sex: Female
  Weight: 83 kg

DRUGS (13)
  1. TRIPTIZOL [Concomitant]
     Dosage: 0.5 DF, QD
     Route: 048
  2. ACTRAPID                           /00646001/ [Concomitant]
     Indication: DIABETES MELLITUS
     Dosage: 18 IU, QD
     Route: 058
  3. FUROSEMIDE [Concomitant]
     Indication: DIURETIC THERAPY
     Dosage: 40 MG, BID
     Route: 048
  4. ACETAMINOPHEN [Concomitant]
     Indication: PAIN
     Dosage: 1 G, EVERY 8 HRS
     Route: 048
  5. ASPIRIN [Concomitant]
     Indication: CARDIAC DISORDER
     Dosage: 100 MG, QD
     Route: 048
  6. IBERCAL D [Concomitant]
     Indication: MINERAL SUPPLEMENTATION
     Dosage: 1 DF, QD
     Route: 048
  7. NORVASC [Concomitant]
     Indication: HYPERTENSION
     Dosage: 5 MG, QD
     Route: 048
  8. SPIRIVA [Concomitant]
     Indication: PULMONARY FIBROSIS
     Dosage: 2 DF, UNK
     Route: 055
  9. INSULIN [Concomitant]
     Indication: DIABETES MELLITUS
     Dosage: 30 IU, QD
     Route: 058
  10. IMURAN [Concomitant]
  11. FORTEO [Suspect]
     Indication: OSTEOPOROSIS
     Dosage: 20 UG, QD
     Route: 058
     Dates: start: 20110615, end: 20120210
  12. PLUSVENT [Concomitant]
     Indication: PULMONARY FIBROSIS
     Dosage: 2 DF, UNK
     Route: 055
  13. LYRICA [Concomitant]
     Indication: PAIN
     Dosage: 25 MG, QD
     Route: 048

REACTIONS (2)
  - ADVERSE EVENT [None]
  - HOSPITALISATION [None]
